FAERS Safety Report 16964125 (Version 1)
Quarter: 2019Q4

REPORT INFORMATION
  Report Type: Report from Study
  Country: PK (occurrence: PK)
  Receive Date: 20191026
  Receipt Date: 20191026
  Transmission Date: 20200122
  Serious: Yes (Death)
  Sender: FDA-Public Use
  Company Number: NVSC2019PK017166

PATIENT
  Age: 57 Year
  Sex: Male
  Weight: 57 kg

DRUGS (1)
  1. TASIGNA [Suspect]
     Active Substance: NILOTINIB
     Indication: CHRONIC MYELOID LEUKAEMIA
     Dosage: 3 DF, BID (600 MG)
     Route: 048
     Dates: start: 20180709

REACTIONS (1)
  - Death [Fatal]

NARRATIVE: CASE EVENT DATE: 20180809
